FAERS Safety Report 12127536 (Version 1)
Quarter: 2016Q1

REPORT INFORMATION
  Report Type: Spontaneous
  Country: US (occurrence: US)
  Receive Date: 20160229
  Receipt Date: 20160229
  Transmission Date: 20160526
  Serious: Yes (Other)
  Sender: FDA-Public Use
  Company Number: US-CELGENE-USA-2016024324

PATIENT
  Age: 75 Year
  Sex: Female

DRUGS (3)
  1. MELOXICAM. [Concomitant]
     Active Substance: MELOXICAM
     Indication: SCOLIOSIS
     Route: 065
     Dates: start: 2013
  2. OTEZLA [Suspect]
     Active Substance: APREMILAST
     Indication: PSORIASIS
     Route: 048
     Dates: start: 20150301, end: 20151031
  3. OTEZLA [Suspect]
     Active Substance: APREMILAST
     Indication: PSORIATIC ARTHROPATHY
     Route: 048
     Dates: start: 20151201

REACTIONS (9)
  - Tremor [Unknown]
  - Nausea [Unknown]
  - Anxiety [Unknown]
  - Headache [Unknown]
  - Weight decreased [Unknown]
  - Upper respiratory tract infection [Unknown]
  - Decreased appetite [Unknown]
  - Diarrhoea [Unknown]
  - Cough [Unknown]

NARRATIVE: CASE EVENT DATE: 20150306
